FAERS Safety Report 9483564 (Version 3)
Quarter: 2023Q1

REPORT INFORMATION
  Report Type: Other
  Country: US (occurrence: None)
  Receive Date: 20130828
  Receipt Date: 20230317
  Transmission Date: 20230418
  Serious: Yes (Hospitalization)
  Sender: FDA-Public Use
  Company Number: US-ROCHE-1265652

PATIENT
  Age: 47 Year
  Sex: Male
  Weight: 93.070 kg

DRUGS (44)
  1. RITUXAN [Suspect]
     Active Substance: RITUXIMAB
     Indication: Fabry^s disease
     Route: 065
  2. RITUXAN [Suspect]
     Active Substance: RITUXIMAB
     Indication: Pain
  3. RITUXAN [Suspect]
     Active Substance: RITUXIMAB
     Indication: Pruritus
  4. XOLAIR [Suspect]
     Active Substance: OMALIZUMAB
     Indication: Fabry^s disease
     Dosage: 30 DAY SUPPLY
     Route: 058
  5. FABRAZYME [Suspect]
     Active Substance: AGALSIDASE BETA
     Indication: Fabry^s disease
     Route: 042
  6. FABRAZYME [Suspect]
     Active Substance: AGALSIDASE BETA
     Route: 042
  7. FABRAZYME [Suspect]
     Active Substance: AGALSIDASE BETA
     Route: 042
  8. ACETAMINOPHEN [Concomitant]
     Active Substance: ACETAMINOPHEN
     Route: 048
  9. AGALSIDASE BETA [Concomitant]
     Active Substance: AGALSIDASE BETA
     Dosage: ONCE
     Route: 042
  10. ALBUTEROL [Concomitant]
     Active Substance: ALBUTEROL
     Dosage: 1 PUFF ^RT^ ONCE
  11. BACITRACIN [Concomitant]
     Active Substance: BACITRACIN
     Route: 061
  12. BACITRACIN [Concomitant]
     Active Substance: BACITRACIN
     Dosage: TWICE A DAY
     Route: 061
  13. CETIRIZINE [Concomitant]
     Active Substance: CETIRIZINE HYDROCHLORIDE
     Route: 048
  14. CETIRIZINE [Concomitant]
     Active Substance: CETIRIZINE HYDROCHLORIDE
     Route: 048
     Dates: end: 20120808
  15. CLOPIDOGREL [Concomitant]
     Active Substance: CLOPIDOGREL BISULFATE
     Route: 048
  16. DRONABINOL [Concomitant]
     Active Substance: DRONABINOL
     Route: 048
  17. DRONABINOL [Concomitant]
     Active Substance: DRONABINOL
     Dosage: TAKES 2 TABS
  18. DULOXETINE [Concomitant]
     Active Substance: DULOXETINE
     Route: 048
  19. EPINEPHRINE [Concomitant]
     Active Substance: EPINEPHRINE
     Dosage: ONCE
     Route: 042
  20. EPINEPHRINE [Concomitant]
     Active Substance: EPINEPHRINE
     Dosage: ONCE
     Route: 030
  21. FAMOTIDINE [Concomitant]
     Active Substance: FAMOTIDINE
     Dosage: ONCE
     Route: 042
  22. GABAPENTIN [Concomitant]
     Active Substance: GABAPENTIN
     Route: 048
     Dates: end: 20120808
  23. GABAPENTIN [Concomitant]
     Active Substance: GABAPENTIN
     Route: 048
  24. HEPARIN SODIUM [Concomitant]
     Active Substance: HEPARIN SODIUM
     Dosage: UNITS
     Route: 058
  25. LISINOPRIL [Concomitant]
     Active Substance: LISINOPRIL
     Route: 048
  26. LISINOPRIL [Concomitant]
     Active Substance: LISINOPRIL
     Route: 048
     Dates: start: 20120808
  27. MONTELUKAST [Concomitant]
     Active Substance: MONTELUKAST SODIUM
     Dosage: NIGHTLY
     Route: 048
  28. NORTRIPTYLINE [Concomitant]
     Active Substance: NORTRIPTYLINE
     Dosage: NIGHTLY
     Route: 048
     Dates: start: 20120808
  29. CYCLOBENZAPRINE [Concomitant]
     Active Substance: CYCLOBENZAPRINE
     Dosage: AS NEEDED; TAKE 1/2 TO 1 TABLET
  30. NABUMETONE [Concomitant]
     Active Substance: NABUMETONE
     Route: 048
  31. CODEINE [Concomitant]
     Active Substance: CODEINE
     Route: 048
  32. ZYRTEC [Concomitant]
     Active Substance: CETIRIZINE HYDROCHLORIDE
  33. SINGULAIR [Concomitant]
     Active Substance: MONTELUKAST SODIUM
  34. CYMBALTA [Concomitant]
     Active Substance: DULOXETINE HYDROCHLORIDE
     Route: 048
  35. DOXEPIN [Concomitant]
     Active Substance: DOXEPIN
     Dosage: 25 MG - 50 MG
     Route: 048
     Dates: start: 20120911
  36. EPIPEN [Concomitant]
     Active Substance: EPINEPHRINE
     Route: 030
     Dates: start: 20130808
  37. FLEXERIL [Concomitant]
     Active Substance: CYCLOBENZAPRINE HYDROCHLORIDE
     Route: 048
     Dates: start: 20120808
  38. MARINOL [Concomitant]
     Active Substance: DRONABINOL
     Route: 048
     Dates: end: 20120808
  39. PLAVIX [Concomitant]
     Active Substance: CLOPIDOGREL BISULFATE
     Route: 048
     Dates: start: 20120808
  40. DIPHENHYDRAMINE [Concomitant]
     Active Substance: DIPHENHYDRAMINE
     Dosage: ONCE
     Route: 042
  41. DIPHENHYDRAMINE [Concomitant]
     Active Substance: DIPHENHYDRAMINE
     Dosage: PRN
     Route: 048
  42. PREDNISONE [Concomitant]
     Active Substance: PREDNISONE
     Route: 048
  43. ZANTAC [Concomitant]
     Active Substance: RANITIDINE HYDROCHLORIDE
  44. METHYLPREDNISOLONE [Concomitant]
     Active Substance: METHYLPREDNISOLONE
     Route: 042

REACTIONS (16)
  - Anaphylactic reaction [Unknown]
  - Rash macular [Unknown]
  - Weight fluctuation [Unknown]
  - Joint stiffness [Unknown]
  - Throat irritation [Unknown]
  - Urticaria [Unknown]
  - Pruritus [Unknown]
  - Rash [Unknown]
  - Cough [Unknown]
  - Arthralgia [Unknown]
  - Neuralgia [Unknown]
  - Hypoaesthesia oral [Unknown]
  - Dyspnoea [Unknown]
  - Hypoacusis [Unknown]
  - Wheezing [Unknown]
  - Off label use [Unknown]
